FAERS Safety Report 5741418-4 (Version None)
Quarter: 2008Q2

REPORT INFORMATION
  Report Type: 
  Country: None (occurrence: None)
  Receive Date: 20080514
  Receipt Date: 20080429
  Transmission Date: 20081010
  Serious: Yes (Death, Hospitalization, Other)
  Sender: FDA-Public Use
  Company Number: PAR_02190_2008

PATIENT
  Sex: Female
  Weight: 52 kg

DRUGS (8)
  1. TORASEMIDE (TORASEMIDE - TORSEMIDE) (PAR) [Suspect]
     Indication: OEDEMA DUE TO CARDIAC DISEASE
     Dosage: (4 MG QD)
     Dates: start: 20080318
  2. SU-011,248 - SUNITINIB MALATE 37.5 MG [Suspect]
     Indication: BREAST CANCER
     Dosage: 37.5 MG QD ORAL
     Route: 048
     Dates: start: 20080219, end: 20080311
  3. AMLODIPINE BESYLATE [Concomitant]
  4. CANDESARTAN CILEXETIL [Concomitant]
  5. CARVEDILOL [Concomitant]
  6. REBAMIPIDE [Concomitant]
  7. LOXOPROFEN SODIUM [Concomitant]
  8. DICLOFENAC SODIUM [Concomitant]

REACTIONS (17)
  - BLOOD PRESSURE INCREASED [None]
  - DEEP VEIN THROMBOSIS [None]
  - DRUG INTERACTION [None]
  - DYSPNOEA EXERTIONAL [None]
  - FACE OEDEMA [None]
  - HEART RATE INCREASED [None]
  - HYPERCOAGULATION [None]
  - MALIGNANT NEOPLASM PROGRESSION [None]
  - METASTASES TO LIVER [None]
  - OXYGEN SATURATION DECREASED [None]
  - PCO2 DECREASED [None]
  - PERICARDIAL EFFUSION [None]
  - PO2 DECREASED [None]
  - PO2 INCREASED [None]
  - PULMONARY EMBOLISM [None]
  - RESPIRATORY FAILURE [None]
  - RESPIRATORY RATE INCREASED [None]
